FAERS Safety Report 9543841 (Version 1)
Quarter: 2013Q3

REPORT INFORMATION
  Report Type: Spontaneous
  Country: US (occurrence: US)
  Receive Date: 20130923
  Receipt Date: 20130923
  Transmission Date: 20140515
  Serious: Yes (Hospitalization)
  Sender: FDA-Public Use
  Company Number: US-GLAXOSMITHKLINE-A1042271A

PATIENT
  Age: 59 Year
  Sex: Female

DRUGS (10)
  1. VENTOLIN [Suspect]
     Indication: PRODUCT USED FOR UNKNOWN INDICATION
     Dosage: 1PUFF AS REQUIRED
     Route: 055
     Dates: start: 201304
  2. ADVAIR [Suspect]
     Indication: CHRONIC OBSTRUCTIVE PULMONARY DISEASE
     Dosage: 1PUFF TWICE PER DAY
     Route: 055
     Dates: start: 200805, end: 201301
  3. QVAR [Suspect]
     Indication: PRODUCT USED FOR UNKNOWN INDICATION
     Dates: start: 201301, end: 20130520
  4. BUSPAR [Concomitant]
  5. LEXAPRO [Concomitant]
  6. TRAZODONE [Concomitant]
  7. LASIX [Concomitant]
  8. METOPROLOL [Concomitant]
  9. METHOCARBAMOL [Concomitant]
  10. TRAMADOL [Concomitant]

REACTIONS (3)
  - Dyspnoea [Unknown]
  - Drug ineffective [Unknown]
  - Pleural effusion [Unknown]
